FAERS Safety Report 9392789 (Version 1)
Quarter: 2013Q3

REPORT INFORMATION
  Report Type: Report from Study
  Country: US (occurrence: US)
  Receive Date: 20130710
  Receipt Date: 20130710
  Transmission Date: 20140515
  Serious: Yes (Hospitalization)
  Sender: FDA-Public Use
  Company Number: US-UCBSA-030739

PATIENT
  Age: 49 Year
  Sex: Female
  Weight: 73 kg

DRUGS (25)
  1. CIMZIA [Suspect]
     Indication: CROHN^S DISEASE
     Route: 058
     Dates: start: 20091109, end: 20091207
  2. CIMZIA [Suspect]
     Indication: CROHN^S DISEASE
     Route: 058
     Dates: start: 20100104, end: 201103
  3. CIMZIA [Suspect]
     Indication: CROHN^S DISEASE
     Route: 058
     Dates: start: 20110414
  4. METHOTREXATE [Suspect]
     Indication: CROHN^S DISEASE
     Route: 058
     Dates: start: 2000, end: 2002
  5. METHOTREXATE [Suspect]
     Indication: CROHN^S DISEASE
     Route: 058
     Dates: start: 200710, end: 200801
  6. METHOTREXATE [Suspect]
     Indication: CROHN^S DISEASE
     Route: 058
     Dates: start: 20080703, end: 20090304
  7. METHOTREXATE [Suspect]
     Indication: CROHN^S DISEASE
     Dosage: 25MG/ML SOULTION 0.8 ML
     Route: 058
     Dates: start: 200905, end: 20110309
  8. FOLIC ACID [Concomitant]
     Indication: SUPPLEMENTATION THERAPY
     Route: 048
     Dates: start: 200905
  9. IMODIUM [Concomitant]
     Indication: CROHN^S DISEASE
     Route: 048
  10. IBUPROFEN [Concomitant]
     Indication: CROHN^S DISEASE
  11. ALLEGRA [Concomitant]
     Indication: SEASONAL ALLERGY
     Dosage: 30 MG TABLETS TWICE A DAY
     Route: 048
     Dates: start: 201002
  12. AZITHROMYCIN [Concomitant]
     Indication: PROPHYLAXIS
     Route: 042
     Dates: start: 20110310, end: 20110319
  13. BENADRYL [Concomitant]
     Indication: MOTION SICKNESS
     Dosage: 1-2 CAPSULES EVERY 4 HOURS AS NEEDED
     Route: 048
     Dates: start: 2010
  14. BENADRYL [Concomitant]
     Indication: RASH
     Dosage: 1-2 CAPSULES EVERY 4 HOURS AS NEEDED
     Route: 048
     Dates: start: 2010
  15. ACETAMINOPHEN [Concomitant]
     Indication: PAIN
     Route: 048
     Dates: start: 20110309, end: 20110313
  16. ALBUTEROL [Concomitant]
     Indication: DYSPNOEA
     Dosage: 90 MCG/ACT. 2 PUFFS
     Dates: start: 2010
  17. CELEXA [Concomitant]
     Dosage: 40 MG  TABLETS: 1.5 TABLETS ONCE DAILY
     Route: 048
  18. AMITRIPTYLINE [Concomitant]
     Route: 048
  19. CLONAZEPAM [Concomitant]
     Indication: ANXIETY
     Dosage: 0.5 MG
     Route: 048
     Dates: start: 20100425
  20. CYANOCOBALAMIN [Concomitant]
     Indication: SUPPLEMENTATION THERAPY
     Route: 030
     Dates: start: 2007
  21. FENTANYL [Concomitant]
     Indication: PAIN
     Dosage: 50 MCG/H PATCH
     Dates: start: 20100527
  22. IRON SUCROSE [Concomitant]
     Indication: IRON DEFICIENCY ANAEMIA
     Route: 042
     Dates: start: 20100817
  23. HEPARIN [Concomitant]
     Indication: PROPHYLAXIS
     Dosage: 5000 UNITS
     Route: 058
     Dates: start: 20110320, end: 20110327
  24. HEPARIN FLUSH [Concomitant]
     Dosage: 50 UNITS
     Route: 042
     Dates: start: 200912
  25. KETOROLAC [Concomitant]

REACTIONS (1)
  - Septic shock [Recovered/Resolved]
